FAERS Safety Report 26144012 (Version 1)
Quarter: 2025Q4

REPORT INFORMATION
  Report Type: Spontaneous
  Country: KZ (occurrence: KZ)
  Receive Date: 20251211
  Receipt Date: 20251211
  Transmission Date: 20260117
  Serious: Yes (Death, Hospitalization)
  Sender: ABBVIE
  Company Number: KZ-ABBVIE-6584421

PATIENT
  Age: 3 Year
  Sex: Male

DRUGS (1)
  1. SEVOFLURANE [Suspect]
     Active Substance: SEVOFLURANE
     Indication: Dental care
     Dosage: DURATION TEXT: FIVE AND A HALF HOURS
     Route: 050

REACTIONS (7)
  - Brain oedema [Fatal]
  - Respiratory tract infection viral [Fatal]
  - Cyanosis [Unknown]
  - Renal failure [Fatal]
  - Encephalopathy [Fatal]
  - Seizure [Unknown]
  - Lethargy [Unknown]
